FAERS Safety Report 17194912 (Version 1)
Quarter: 2019Q4

REPORT INFORMATION
  Report Type: Spontaneous
  Country: MX (occurrence: MX)
  Receive Date: 20191224
  Receipt Date: 20191224
  Transmission Date: 20200122
  Serious: Yes (Other)
  Sender: FDA-Public Use
  Company Number: MX-ALVOGEN-2019-ALVOGEN-102231

PATIENT
  Age: 68 Year
  Sex: Male

DRUGS (3)
  1. TENORMIN [Suspect]
     Active Substance: ATENOLOL
     Indication: HYPERTENSION
     Dosage: 100 MG FOR 14 YEARS (2005) 1 DAILY
     Route: 048
  2. TENORMIN [Suspect]
     Active Substance: ATENOLOL
     Indication: HYPERTENSION
     Dosage: HALF MORE TABLET
     Route: 048
  3. TENORMIN [Suspect]
     Active Substance: ATENOLOL
     Indication: HYPERTENSION
     Dosage: 50 MG SINCE 2011, 1 DAILY
     Route: 048

REACTIONS (3)
  - Product physical issue [Unknown]
  - Headache [Unknown]
  - Blood pressure increased [Unknown]
